FAERS Safety Report 7215011-0 (Version None)
Quarter: 2011Q1

REPORT INFORMATION
  Report Type: 
  Country: None (occurrence: None)
  Receive Date: 20110107
  Receipt Date: 20100628
  Transmission Date: 20110831
  Serious: No
  Sender: FDA-Public Use
  Company Number: A0869100A

PATIENT
  Age: 5 Month
  Sex: Female

DRUGS (5)
  1. FERROUS SULFATE [Concomitant]
  2. POLYVISOL [Concomitant]
  3. LOVAZA [Suspect]
     Dosage: 1G PER DAY
     Route: 048
     Dates: start: 20100101
  4. PROTONIX [Concomitant]
  5. VITAMIN E [Concomitant]

REACTIONS (2)
  - DRUG ADMINISTRATION ERROR [None]
  - OFF LABEL USE [None]
